FAERS Safety Report 15210444 (Version 1)
Quarter: 2018Q3

REPORT INFORMATION
  Report Type: Spontaneous
  Country: US (occurrence: US)
  Receive Date: 20180727
  Receipt Date: 20180727
  Transmission Date: 20181010
  Serious: Yes (Other)
  Sender: FDA-Public Use
  Company Number: US-SA-2017SA255269

PATIENT
  Age: 60 Year
  Sex: Female
  Weight: 76.2 kg

DRUGS (16)
  1. PARAPLATIN [Concomitant]
     Active Substance: CARBOPLATIN
  2. DOXORUBICIN [Concomitant]
     Active Substance: DOXORUBICIN
  3. TAXOL [Concomitant]
     Active Substance: PACLITAXEL
  4. FEMARA [Concomitant]
     Active Substance: LETROZOLE
  5. GLIPIZIDE. [Concomitant]
     Active Substance: GLIPIZIDE
     Dosage: UNK
     Dates: start: 2010
  6. CITALOPRAM [Concomitant]
     Active Substance: CITALOPRAM HYDROBROMIDE
     Dosage: UNK
     Dates: start: 2010
  7. TAXOTERE [Suspect]
     Active Substance: DOCETAXEL
     Dosage: UNK UNK,QCY
     Route: 042
     Dates: start: 20090512, end: 20090512
  8. DONEPEZIL. [Concomitant]
     Active Substance: DONEPEZIL
     Dosage: UNK
     Dates: start: 2010
  9. ENALAPRIL [Concomitant]
     Active Substance: ENALAPRIL
     Dosage: UNK
     Dates: start: 2010
  10. HCTZ [Concomitant]
     Active Substance: HYDROCHLOROTHIAZIDE
     Dosage: UNK
     Dates: start: 2010
  11. PACLITAXEL. [Concomitant]
     Active Substance: PACLITAXEL
  12. LORAZEPAM. [Concomitant]
     Active Substance: LORAZEPAM
     Dosage: UNK
     Dates: start: 2010
  13. LETROZOLE. [Concomitant]
     Active Substance: LETROZOLE
     Dosage: UNK
     Dates: start: 2010
  14. TAXOTERE [Suspect]
     Active Substance: DOCETAXEL
     Indication: BREAST CANCER
     Dosage: UNK UNK,QCY
     Route: 042
     Dates: start: 20090220, end: 20090220
  15. GABAPENTINA [Concomitant]
     Active Substance: GABAPENTIN
     Dosage: UNK
     Dates: start: 2010
  16. OXYCODONE [Concomitant]
     Active Substance: OXYCODONE
     Dosage: UNK
     Dates: start: 2010

REACTIONS (2)
  - Alopecia [Recovering/Resolving]
  - Psychological trauma [Unknown]

NARRATIVE: CASE EVENT DATE: 200911
